FAERS Safety Report 7332439-9 (Version None)
Quarter: 2011Q1

REPORT INFORMATION
  Report Type: 
  Country: None (occurrence: None)
  Receive Date: 20110304
  Receipt Date: 20110301
  Transmission Date: 20110831
  Serious: Yes (Other)
  Sender: FDA-Public Use
  Company Number: US-PFIZER INC-US-WYE-H18521510

PATIENT
  Sex: Female
  Weight: 102.4 kg

DRUGS (3)
  1. EFFEXOR XR [Suspect]
     Indication: ANXIETY
     Dosage: UNK
     Route: 048
     Dates: start: 19860101
  2. METFORMIN [Concomitant]
     Indication: DIABETES MELLITUS
     Dosage: UNK
  3. EFFEXOR XR [Suspect]
     Indication: DEPRESSION

REACTIONS (3)
  - CARDIAC FAILURE [None]
  - CORONARY ARTERY OCCLUSION [None]
  - CARDIAC OPERATION [None]
